FAERS Safety Report 4762817-3 (Version None)
Quarter: 2005Q3

REPORT INFORMATION
  Report Type: 
  Country: None (occurrence: None)
  Receive Date: 20050907
  Receipt Date: 20050818
  Transmission Date: 20060218
  Serious: Yes (Death, Hospitalization, Other)
  Sender: FDA-Public Use
  Company Number: PHBS2005JP12019

PATIENT
  Age: 33 Year
  Sex: Male

DRUGS (5)
  1. PREDNISOLONE [Suspect]
     Indication: STEM CELL TRANSPLANT
     Route: 065
  2. CARBOPLATIN [Suspect]
     Indication: STEM CELL TRANSPLANT
     Dosage: 300 MG/M 2/DAY ON DAY 7 TO 9
     Route: 065
  3. CYCLOPHOSPHAMIDE [Suspect]
     Indication: STEM CELL TRANSPLANT
     Dosage: 60 MG/KG/DAY ON DAY 5 TO 6
     Route: 065
  4. CYCLOSPORINE [Suspect]
     Indication: STEM CELL TRANSPLANT
     Route: 065
  5. METHOTREXATE [Concomitant]
     Dosage: SHORT-TERM

REACTIONS (14)
  - ANOXIA [None]
  - CHROMATURIA [None]
  - DYSPNOEA [None]
  - ENDOTHELIAL DYSFUNCTION [None]
  - GRAFT VERSUS HOST DISEASE [None]
  - HAEMATURIA [None]
  - HAEMOLYSIS [None]
  - HAEMOPTYSIS [None]
  - HYPOTENSION [None]
  - NAUSEA [None]
  - PLATELET COUNT DECREASED [None]
  - PULMONARY ALVEOLAR HAEMORRHAGE [None]
  - RENAL IMPAIRMENT [None]
  - THROMBOTIC MICROANGIOPATHY [None]
